FAERS Safety Report 4432158-2 (Version None)
Quarter: 2004Q3

REPORT INFORMATION
  Report Type: 
  Country: None (occurrence: None)
  Receive Date: 20040818
  Receipt Date: 20040804
  Transmission Date: 20050211
  Serious: Yes (Hospitalization, Other)
  Sender: FDA-Public Use
  Company Number: US_0408104622

PATIENT
  Age: 76 Year
  Sex: Male

DRUGS (3)
  1. OLANZAPINE [Suspect]
     Indication: BIPOLAR DISORDER
     Dosage: 30 MG DAY
     Dates: start: 19970101
  2. FLUOXETINE HCL [Suspect]
     Indication: BIPOLAR DISORDER
     Dosage: 20 MG DAY
  3. VALPROATE SODIUM [Concomitant]

REACTIONS (19)
  - AGGRESSION [None]
  - ASTERIXIS [None]
  - CLONUS [None]
  - CONFUSION POSTOPERATIVE [None]
  - CONFUSIONAL STATE [None]
  - DELIRIUM [None]
  - DEPRESSED LEVEL OF CONSCIOUSNESS [None]
  - DRUG INTERACTION [None]
  - ECHOLALIA [None]
  - FALL [None]
  - GAIT DISTURBANCE [None]
  - MANIA [None]
  - PERSEVERATION [None]
  - POSTOPERATIVE INFECTION [None]
  - SLEEP ATTACKS [None]
  - SLUGGISHNESS [None]
  - SOMNOLENCE [None]
  - SPINAL OPERATION [None]
  - STAPHYLOCOCCAL INFECTION [None]
